FAERS Safety Report 4563921-5 (Version None)
Quarter: 2005Q1

REPORT INFORMATION
  Report Type: 
  Country: None (occurrence: None)
  Receive Date: 20050121
  Receipt Date: 20050103
  Transmission Date: 20050727
  Serious: Yes (Hospitalization)
  Sender: FDA-Public Use
  Company Number: US_0501109853

PATIENT
  Age: 14 Year
  Sex: Female

DRUGS (2)
  1. HUMALOG [Suspect]
  2. LANTUS [Concomitant]

REACTIONS (3)
  - APPENDICECTOMY [None]
  - HYPERGLYCAEMIA [None]
  - MEDICATION ERROR [None]
